FAERS Safety Report 24868324 (Version 1)
Quarter: 2025Q1

REPORT INFORMATION
  Report Type: Spontaneous
  Country: US (occurrence: None)
  Receive Date: 20250119
  Receipt Date: 20250119
  Transmission Date: 20250408
  Serious: No
  Sender: FDA-CTU
  Company Number: None

PATIENT
  Age: 70 Year
  Sex: Female
  Weight: 87.3 kg

DRUGS (9)
  1. SEMAGLUTIDE [Suspect]
     Active Substance: SEMAGLUTIDE
     Indication: Overweight
     Dosage: FREQUENCY : WEEKLY;?OTHER ROUTE : INJECTION INTO FATTY TISSUE;?
     Route: 050
  2. DULOXETINE [Concomitant]
     Active Substance: DULOXETINE
  3. Trazedone [Concomitant]
  4. VALSARTAN [Concomitant]
     Active Substance: VALSARTAN
  5. MONTELUKAST [Concomitant]
     Active Substance: MONTELUKAST
  6. VESICARE [Concomitant]
     Active Substance: SOLIFENACIN SUCCINATE
  7. Omega 3s [Concomitant]
  8. VITAMIN D NOS [Concomitant]
     Active Substance: CHOLECALCIFEROL\ERGOCALCIFEROL
  9. IRON [Concomitant]
     Active Substance: IRON

REACTIONS (5)
  - Nausea [None]
  - Vomiting [None]
  - Abdominal pain [None]
  - Dizziness [None]
  - Therapy cessation [None]

NARRATIVE: CASE EVENT DATE: 20240112
